FAERS Safety Report 6691296-4 (Version None)
Quarter: 2010Q2

REPORT INFORMATION
  Report Type: 
  Country: None (occurrence: None)
  Receive Date: 20100422
  Receipt Date: 20100325
  Transmission Date: 20101027
  Serious: No
  Sender: FDA-Public Use
  Company Number: US-JNJFOC-20100300561

PATIENT
  Age: 15 Year
  Sex: Female
  Weight: 57.61 kg

DRUGS (9)
  1. RISPERDAL CONSTA [Suspect]
     Indication: ATTENTION DEFICIT/HYPERACTIVITY DISORDER
     Route: 030
  2. RISPERDAL CONSTA [Suspect]
     Route: 030
  3. RISPERDAL CONSTA [Suspect]
     Indication: BIPOLAR DISORDER
     Route: 030
  4. RISPERDAL CONSTA [Suspect]
     Route: 030
  5. TOPAMAX [Suspect]
     Indication: MIGRAINE
     Route: 048
  6. LEXAPRO [Suspect]
     Indication: DEPRESSION
     Route: 048
  7. PROZAC [Suspect]
     Indication: DEPRESSION
     Route: 048
  8. VYVANSE [Concomitant]
     Indication: ATTENTION DEFICIT/HYPERACTIVITY DISORDER
     Route: 048
  9. RECLIPSEN [Concomitant]
     Indication: CONTRACEPTION
     Route: 048

REACTIONS (15)
  - AGGRESSION [None]
  - ANXIETY [None]
  - CONVULSION [None]
  - DEPRESSION [None]
  - GAIT DISTURBANCE [None]
  - INJECTION SITE PAIN [None]
  - INSOMNIA [None]
  - IRRITABILITY [None]
  - MANIA [None]
  - MIGRAINE [None]
  - MOOD ALTERED [None]
  - PSYCHOTIC DISORDER [None]
  - RESTLESSNESS [None]
  - THERAPEUTIC RESPONSE DECREASED [None]
  - WRONG TECHNIQUE IN DRUG USAGE PROCESS [None]
